FAERS Safety Report 4651566-8 (Version None)
Quarter: 2005Q2

REPORT INFORMATION
  Report Type: 
  Country: None (occurrence: None)
  Receive Date: 20050502
  Receipt Date: 20050418
  Transmission Date: 20051028
  Serious: Yes (Hospitalization)
  Sender: FDA-Public Use
  Company Number: 2005059493

PATIENT
  Age: 58 Year
  Sex: Female
  Weight: 86.1834 kg

DRUGS (22)
  1. CELEBREX [Suspect]
     Indication: CARPAL TUNNEL SYNDROME
     Dosage: 200 MG (100 MG, 2 IN 1 D), ORAL
     Route: 048
  2. CELEBREX [Suspect]
     Indication: RHEUMATOID ARTHRITIS
     Dosage: 200 MG (100 MG, 2 IN 1 D), ORAL
     Route: 048
  3. BEXTRA [Suspect]
     Indication: CARPAL TUNNEL SYNDROME
     Dosage: 20 MG (10 MG, 2 IN 1 D), ORAL
     Route: 048
     Dates: start: 20020101, end: 20050407
  4. BEXTRA [Suspect]
     Indication: RHEUMATOID ARTHRITIS
     Dosage: 20 MG (10 MG, 2 IN 1 D), ORAL
     Route: 048
     Dates: start: 20020101, end: 20050407
  5. DAYPRO [Suspect]
     Indication: RHEUMATOID ARTHRITIS
     Dosage: ORAL
     Route: 048
     Dates: start: 20040901, end: 20041001
  6. DETROL LA [Suspect]
     Indication: ILL-DEFINED DISORDER
     Dosage: 4 MG (4 MG, 1 IN 1 D), ORAL
     Route: 048
     Dates: start: 20030101, end: 20050201
  7. TRAZODONE HCL [Concomitant]
  8. METOPROLOL TARTRATE [Concomitant]
  9. GABAPENTIN [Concomitant]
  10. LANSOPRAZOLE [Concomitant]
  11. CLOPIDOGREL BISULFATE [Concomitant]
  12. PIOGLITAZONE HCL [Concomitant]
  13. ISOSORBIDE MONONITRATE [Concomitant]
  14. LISINOPRIL [Concomitant]
  15. ENALAPRIL MALEATE [Concomitant]
  16. HUMULIN 70/30 [Concomitant]
  17. INSULIN HUMAN (INSULIN HUMAN) [Concomitant]
  18. GEMFIBROZIL [Concomitant]
  19. PAROXETINE HCL [Concomitant]
  20. OXYBUTYNIN CHLORIDE [Concomitant]
  21. CYCLOBENZAPRINE HYDROCHLORIDE (CYCLOBENAPRINE HYDROCHLORIDE) [Concomitant]
  22. VALPROATE SODIUM [Concomitant]

REACTIONS (7)
  - ANGIOPLASTY [None]
  - ARTERIAL DISORDER [None]
  - DRUG INEFFECTIVE [None]
  - HAEMORRHAGE [None]
  - RASH [None]
  - SKIN EXFOLIATION [None]
  - STENT PLACEMENT [None]
